FAERS Safety Report 18996092 (Version 1)
Quarter: 2021Q1

REPORT INFORMATION
  Report Type: Spontaneous
  Country: US (occurrence: US)
  Receive Date: 20210311
  Receipt Date: 20210311
  Transmission Date: 20210420
  Serious: No
  Sender: FDA-Public Use
  Company Number: US-TEVA-2021-US-1889148

PATIENT
  Age: 74 Year
  Sex: Female

DRUGS (19)
  1. FISH OIL [Concomitant]
     Active Substance: FISH OIL
     Route: 048
  2. TOPIRAMATE. [Concomitant]
     Active Substance: TOPIRAMATE
     Route: 048
  3. CLONAZEPAM. [Concomitant]
     Active Substance: CLONAZEPAM
     Route: 048
  4. LAMOTRIGINE. [Concomitant]
     Active Substance: LAMOTRIGINE
     Route: 048
  5. CRANBERY EXTRACT [Concomitant]
     Route: 048
  6. DULOXETINE XR [Concomitant]
     Route: 048
  7. IRON [Concomitant]
     Active Substance: IRON
     Route: 048
  8. SUMATRIPTAN SUCCINATE. [Concomitant]
     Active Substance: SUMATRIPTAN SUCCINATE
     Route: 048
  9. AUSTEDO [Suspect]
     Active Substance: DEUTETRABENAZINE
     Indication: TARDIVE DYSKINESIA
     Dosage: 24 MILLIGRAM DAILY;
     Route: 048
  10. PANTOPRAZOLE SODIUM. [Concomitant]
     Active Substance: PANTOPRAZOLE SODIUM
     Route: 048
  11. SIMVASTATIN. [Concomitant]
     Active Substance: SIMVASTATIN
     Route: 048
  12. VALSARTAN?HYDROCHLOROTIAZIDE [Concomitant]
     Route: 048
  13. ONE?A? DAY WOMENS FORMULA [Concomitant]
     Route: 048
  14. DULOXETINE XR [Concomitant]
     Route: 048
  15. METOPROLOL TARTRATE. [Concomitant]
     Active Substance: METOPROLOL TARTRATE
     Route: 048
  16. MELATONIN [Concomitant]
     Active Substance: MELATONIN
     Route: 048
  17. BUPROPION HCL XR [Concomitant]
  18. RISPERIDONE. [Concomitant]
     Active Substance: RISPERIDONE
     Route: 048
  19. CALCIUM+D3 [Concomitant]
     Active Substance: CALCIUM\CHOLECALCIFEROL
     Route: 048

REACTIONS (2)
  - Lung disorder [Unknown]
  - Chest discomfort [Unknown]
